FAERS Safety Report 9278719 (Version 1)
Quarter: 2013Q2

REPORT INFORMATION
  Report Type: Spontaneous
  Country: FR (occurrence: None)
  Receive Date: 20130501
  Receipt Date: 20130501
  Transmission Date: 20140414
  Serious: Yes (Other)
  Sender: FDA-Public Use
  Company Number: 2135225-2013-00052

PATIENT
  Age: 63 Year
  Sex: Male

DRUGS (2)
  1. AETOXISCLEROL TAMPONNE 0.5% [Suspect]
     Indication: SCLEROTHERAPY
     Dosage: 4 ML, SINGLE DOSE, IV
     Route: 042
     Dates: start: 20130402
  2. AETOXISCLEROL TAMPONNE 0.5% [Suspect]
     Indication: VARICOSE VEIN
     Dosage: 4 ML, SINGLE DOSE, IV
     Route: 042
     Dates: start: 20130402

REACTIONS (2)
  - Angioedema [None]
  - Anaphylactic reaction [None]
